FAERS Safety Report 7183916-5 (Version None)
Quarter: 2010Q4

REPORT INFORMATION
  Report Type: 
  Country: None (occurrence: None)
  Receive Date: 20101210
  Receipt Date: 20101126
  Transmission Date: 20110411
  Serious: Yes (Hospitalization)
  Sender: FDA-Public Use
  Company Number: 019589

PATIENT
  Sex: Female
  Weight: 68 kg

DRUGS (8)
  1. VIMPAT [Suspect]
     Indication: EPILEPSY
     Dosage: 150 (UNITS UNSPECIFIED) TWICE A DAY ORAL
     Route: 048
     Dates: start: 20100719
  2. CITALOPRAM [Concomitant]
  3. L-THYROXINE /00068001/ [Concomitant]
  4. SIMVASTATIN [Concomitant]
  5. ASPIRIN [Concomitant]
  6. BISOPROLOL [Concomitant]
  7. RAMIPRIL [Concomitant]
  8. OMEPRAZOLE [Concomitant]

REACTIONS (8)
  - ANKLE FRACTURE [None]
  - ATRIAL FIBRILLATION [None]
  - CARDIAC FAILURE [None]
  - MITRAL VALVE INCOMPETENCE [None]
  - MYOCARDIAL INFARCTION [None]
  - RASH [None]
  - TRICUSPID VALVE INCOMPETENCE [None]
  - VENTRICULAR FIBRILLATION [None]
